FAERS Safety Report 7493715-2 (Version None)
Quarter: 2011Q2

REPORT INFORMATION
  Report Type: 
  Country: None (occurrence: None)
  Receive Date: 20110513
  Receipt Date: 20110429
  Transmission Date: 20111010
  Serious: Yes (Other)
  Sender: FDA-Public Use
  Company Number: 2011MA005401

PATIENT
  Age: 80 Year
  Sex: Female

DRUGS (7)
  1. PENTASA [Concomitant]
  2. ADCAL-D3 [Concomitant]
  3. PROPRANOLOL [Concomitant]
  4. CARBAMAZEPINE [Suspect]
     Indication: TRIGEMINAL NEURALGIA
     Dosage: 200 MG;QID;PO
     Route: 048
  5. MIRTAZAPINE [Suspect]
     Indication: DEPRESSION
     Dosage: 45 MG;QID;PO
     Route: 048
     Dates: start: 20110101, end: 20110310
  6. MIRTAZAPINE [Suspect]
     Indication: DEPRESSION
     Dosage: 45 MG;QD;PO
     Route: 048
     Dates: start: 20110101, end: 20110310
  7. CLONAZEPAM [Concomitant]

REACTIONS (1)
  - NEUTROPENIA [None]
